FAERS Safety Report 26062330 (Version 1)
Quarter: 2025Q4

REPORT INFORMATION
  Report Type: Spontaneous
  Country: JP (occurrence: JP)
  Receive Date: 20251119
  Receipt Date: 20251119
  Transmission Date: 20260118
  Serious: Yes (Other)
  Sender: ACCORD
  Company Number: JP-MLMSERVICE-20251031-PI691055-00152-1

PATIENT
  Age: 65 Year
  Sex: Female

DRUGS (18)
  1. MITOMYCIN [Suspect]
     Active Substance: MITOMYCIN
     Indication: Papilloma viral infection
     Dosage: DAY 1-4
  2. FLUOROURACIL [Suspect]
     Active Substance: FLUOROURACIL
     Indication: Papilloma viral infection
     Dosage: DAY1: 96 H CONTINUOUS INFUSION
  3. DEXAMETHASONE [Suspect]
     Active Substance: DEXAMETHASONE
     Indication: Papilloma viral infection
     Dosage: DAY 1
  4. ALFACALCIDOL [Concomitant]
     Active Substance: ALFACALCIDOL
  5. DIETARY SUPPLEMENT\PROBIOTICS [Concomitant]
     Active Substance: DIETARY SUPPLEMENT\PROBIOTICS NOS
  6. CARVEDILOL [Concomitant]
     Active Substance: CARVEDILOL
  7. CILNIDIPINE [Concomitant]
     Active Substance: CILNIDIPINE
  8. CLOTIAZEPAM [Concomitant]
     Active Substance: CLOTIAZEPAM
  9. EVOCALCET [Concomitant]
     Active Substance: EVOCALCET
  10. LANTHANUM CARBONATE [Concomitant]
     Active Substance: LANTHANUM CARBONATE
  11. MAPROTILINE [Concomitant]
     Active Substance: MAPROTILINE
  12. OLMESARTAN [Concomitant]
     Active Substance: OLMESARTAN
  13. FLUOROURACIL [Suspect]
     Active Substance: FLUOROURACIL
     Indication: Anal squamous cell carcinoma
     Dosage: DAY1: 96 H CONTINUOUS INFUSION
  14. FLUOROURACIL [Suspect]
     Active Substance: FLUOROURACIL
     Indication: Anal cancer stage I
     Dosage: DAY1: 96 H CONTINUOUS INFUSION
  15. MITOMYCIN [Suspect]
     Active Substance: MITOMYCIN
     Indication: Anal cancer stage I
     Dosage: DAY 1-4
  16. DEXAMETHASONE [Suspect]
     Active Substance: DEXAMETHASONE
     Indication: Anal cancer stage I
     Dosage: DAY 1
  17. DEXAMETHASONE [Suspect]
     Active Substance: DEXAMETHASONE
     Indication: Anal squamous cell carcinoma
     Dosage: DAY 1
  18. MITOMYCIN [Suspect]
     Active Substance: MITOMYCIN
     Indication: Anal squamous cell carcinoma
     Dosage: DAY 1-4

REACTIONS (4)
  - Neutropenia [Recovered/Resolved]
  - Thrombocytopenia [Recovered/Resolved]
  - Nausea [Unknown]
  - Vomiting [Unknown]
